FAERS Safety Report 15525660 (Version 1)
Quarter: 2018Q4

REPORT INFORMATION
  Report Type: Report from Study
  Country: US (occurrence: US)
  Receive Date: 20181019
  Receipt Date: 20181019
  Transmission Date: 20190205
  Serious: Yes (Other)
  Sender: FDA-Public Use
  Company Number: US-ACTELION-A-NJ2018-179083

PATIENT
  Sex: Female
  Weight: 131.7 kg

DRUGS (4)
  1. METFORMIN [Concomitant]
     Active Substance: METFORMIN HYDROCHLORIDE
     Indication: ESSENTIAL HYPERTENSION
     Dosage: 500 MG, BID
     Route: 048
  2. UPTRAVI [Suspect]
     Active Substance: SELEXIPAG
     Indication: PULMONARY ARTERIAL HYPERTENSION
     Dosage: 1000 MCG, BID
     Route: 048
  3. OPSUMIT [Concomitant]
     Active Substance: MACITENTAN
  4. UPTRAVI [Suspect]
     Active Substance: SELEXIPAG
     Dosage: 800 UNK, UNK
     Route: 048

REACTIONS (7)
  - Diabetes mellitus [Unknown]
  - Abdominal discomfort [Unknown]
  - Colitis [Unknown]
  - Blood glucose increased [Unknown]
  - Pain [Unknown]
  - Nausea [Unknown]
  - Enteritis infectious [Unknown]
